FAERS Safety Report 7445123-8 (Version None)
Quarter: 2011Q2

REPORT INFORMATION
  Report Type: 
  Country: None (occurrence: None)
  Receive Date: 20110429
  Receipt Date: 20110419
  Transmission Date: 20111010
  Serious: Yes (Other)
  Sender: FDA-Public Use
  Company Number: US-JNJFOC-20110409416

PATIENT
  Age: 20 Year
  Sex: Male
  Weight: 77.11 kg

DRUGS (1)
  1. MYLANTA ANTACID/ANTI-GAS CHERRY [Suspect]
     Indication: FLATULENCE
     Dosage: ^5 SWALLOWS SO PROBABLY ABOUT 6 TABLESPOONS^
     Route: 048

REACTIONS (4)
  - WRONG TECHNIQUE IN DRUG USAGE PROCESS [None]
  - HALLUCINATION [None]
  - INCORRECT DOSE ADMINISTERED [None]
  - EXPIRED DRUG ADMINISTERED [None]
